FAERS Safety Report 5372634-1 (Version None)
Quarter: 2007Q2

REPORT INFORMATION
  Report Type: 
  Country: None (occurrence: None)
  Receive Date: 20070627
  Receipt Date: 20070618
  Transmission Date: 20071010
  Serious: Yes (Other)
  Sender: FDA-Public Use
  Company Number: US-PFIZER INC-2007050367

PATIENT
  Sex: Female

DRUGS (3)
  1. NEURONTIN [Suspect]
     Indication: FIBROMYALGIA
     Dates: start: 20030101, end: 20030101
  2. VICODIN [Concomitant]
  3. SOMA [Concomitant]

REACTIONS (7)
  - CONTUSION [None]
  - GAIT DISTURBANCE [None]
  - GENERALISED OEDEMA [None]
  - HYPERSENSITIVITY [None]
  - PAIN OF SKIN [None]
  - PRURITUS [None]
  - SWELLING FACE [None]
